FAERS Safety Report 17488048 (Version 10)
Quarter: 2023Q4

REPORT INFORMATION
  Report Type: Spontaneous
  Country: US (occurrence: US)
  Receive Date: 20200303
  Receipt Date: 20231110
  Transmission Date: 20240110
  Serious: Yes (Hospitalization, Other)
  Sender: FDA-Public Use
  Company Number: US-PFIZER INC-2019112044

PATIENT
  Age: 74 Year
  Sex: Female
  Weight: 104.33 kg

DRUGS (3)
  1. TOVIAZ [Suspect]
     Active Substance: FESOTERODINE FUMARATE
     Indication: Hypertonic bladder
     Dosage: 8 MG, DAILY
     Route: 048
  2. TOVIAZ [Suspect]
     Active Substance: FESOTERODINE FUMARATE
     Indication: Renal disorder
     Dosage: UNK
  3. TOVIAZ [Suspect]
     Active Substance: FESOTERODINE FUMARATE
     Dosage: 8 MG, 1X/DAY
     Route: 048

REACTIONS (9)
  - Spinal osteoarthritis [Unknown]
  - Drug dependence [Unknown]
  - Rheumatoid arthritis [Unknown]
  - Gait inability [Unknown]
  - General physical health deterioration [Unknown]
  - Gait disturbance [Unknown]
  - Back disorder [Unknown]
  - Urinary incontinence [Unknown]
  - Spondylolisthesis [Unknown]
